FAERS Safety Report 11036865 (Version 1)
Quarter: 2015Q2

REPORT INFORMATION
  Report Type: Spontaneous
  Country: None (occurrence: None)
  Receive Date: 20150415
  Receipt Date: 20150415
  Transmission Date: 20150821
  Serious: Yes (Hospitalization)
  Sender: FDA-Public Use
  Company Number: None

PATIENT
  Age: 62 Year
  Sex: Male

DRUGS (1)
  1. NICOTINE PATCHES 14 MG [Suspect]
     Active Substance: NICOTINE
     Indication: SMOKING CESSATION THERAPY
     Dosage: ALMOST 4 WEEKS ON/OFF
     Route: 008

REACTIONS (3)
  - Wrong technique in drug usage process [None]
  - Cardiac arrest [None]
  - Dizziness [None]

NARRATIVE: CASE EVENT DATE: 20150402
